FAERS Safety Report 6174189-0 (Version None)
Quarter: 2009Q2

REPORT INFORMATION
  Report Type: 
  Country: None (occurrence: None)
  Receive Date: 20090430
  Receipt Date: 20080820
  Transmission Date: 20091009
  Serious: No
  Sender: FDA-Public Use
  Company Number: US-ASTRAZENECA-2008UW06821

PATIENT
  Age: 65 Year
  Sex: Female
  Weight: 64.4 kg

DRUGS (6)
  1. NEXIUM [Suspect]
     Indication: HIATUS HERNIA
     Route: 048
  2. NEXIUM [Suspect]
     Indication: GASTROOESOPHAGEAL REFLUX DISEASE
     Route: 048
  3. VITAMIN D [Concomitant]
     Dosage: 400 UNITS
  4. CALCIUM + VITAMIN D [Concomitant]
     Dosage: 1200-1500 MG
  5. MULTI-VITAMINS [Concomitant]
  6. PREVACID [Concomitant]

REACTIONS (2)
  - OSTEOPENIA [None]
  - OSTEOPOROSIS [None]
